FAERS Safety Report 4761234-X (Version None)
Quarter: 2005Q3

REPORT INFORMATION
  Report Type: 
  Country: None (occurrence: None)
  Receive Date: 20050830
  Receipt Date: 20050721
  Transmission Date: 20060218
  Serious: No
  Sender: FDA-Public Use
  Company Number: FABR-11177

PATIENT
  Age: 45 Year
  Sex: Male
  Weight: 105.6881 kg

DRUGS (9)
  1. FABRAZYME [Suspect]
     Indication: FABRY'S DISEASE
     Dosage: 70 MG IV
     Route: 042
     Dates: start: 20050707
  2. FABRAZYME [Suspect]
     Indication: FABRY'S DISEASE
     Dosage: 70 MG IV
     Route: 042
     Dates: start: 20030806, end: 20050501
  3. ACETAMINOPHEN [Concomitant]
  4. HYDROCORTISONE [Concomitant]
  5. DILANTIN [Concomitant]
  6. TEGRETOL-XR [Concomitant]
  7. PENICILLIN V POTASSIUM [Concomitant]
  8. WARFARIN SODIUM [Concomitant]
  9. LISINOPRIL [Concomitant]

REACTIONS (2)
  - CHILLS [None]
  - PARAESTHESIA [None]
